FAERS Safety Report 5505912-3 (Version None)
Quarter: 2007Q4

REPORT INFORMATION
  Report Type: 
  Country: None (occurrence: None)
  Receive Date: 20071102
  Receipt Date: 20071023
  Transmission Date: 20080405
  Serious: Yes (Other)
  Sender: FDA-Public Use
  Company Number: PL-PFIZER INC-2007090754

PATIENT
  Sex: Female
  Weight: 74 kg

DRUGS (8)
  1. XANAX [Suspect]
     Indication: SLEEP DISORDER
     Dosage: DAILY DOSE:.5MG
     Route: 048
  2. XANAX [Suspect]
     Indication: BACK PAIN
  3. NIMESIL [Concomitant]
     Indication: SLEEP DISORDER
     Dates: start: 20070629, end: 20070702
  4. NIMESIL [Concomitant]
     Indication: BACK PAIN
  5. LORAFEN [Concomitant]
     Indication: SLEEP DISORDER
     Route: 048
     Dates: start: 20070629, end: 20070702
  6. LORAFEN [Concomitant]
     Indication: BACK PAIN
  7. TETRACYCLINE HYDROCHLORIDE [Concomitant]
     Indication: SLEEP DISORDER
     Route: 048
     Dates: start: 20070629, end: 20070702
  8. TETRACYCLINE HYDROCHLORIDE [Concomitant]
     Indication: BACK PAIN

REACTIONS (3)
  - BALANCE DISORDER [None]
  - CONFUSIONAL STATE [None]
  - HYPOTONIA [None]
